FAERS Safety Report 10435814 (Version 1)
Quarter: 2014Q3

REPORT INFORMATION
  Report Type: Spontaneous
  Country: US (occurrence: None)
  Receive Date: 20140904
  Receipt Date: 20140904
  Transmission Date: 20150326
  Serious: Yes (Death, Other)
  Sender: FDA-Public Use
  Company Number: COR_00060_2014

PATIENT
  Age: 72 Year
  Sex: Male

DRUGS (3)
  1. CARBOPLATIN. [Suspect]
     Active Substance: CARBOPLATIN
     Dosage: AREA UNDER THE CURVE OF 5 ON DAY 1 (CYCLE 1), (AREA UNDER THE CURVE OF 3.5 ON DAY 1, REDUCED BY 30% (CYCLE 2)
  2. PACLITAXEL (PACLITAXEL) [Suspect]
     Active Substance: PACLITAXEL
     Indication: SQUAMOUS CELL CARCINOMA
     Dosage: (CYCLE 1) 160MG/M2, REDUCED BY 30% (CYCLE 2)
  3. HYDROCORTISONE (HYDROCORTISONE) [Suspect]
     Active Substance: HYDROCORTISONE
     Indication: STEROID THERAPY

REACTIONS (9)
  - Haemodynamic instability [None]
  - No therapeutic response [None]
  - Ileus [None]
  - Colitis ischaemic [None]
  - Septic shock [None]
  - Febrile neutropenia [None]
  - Abdominal distension [None]
  - Systemic candida [None]
  - Pancytopenia [None]
